FAERS Safety Report 7328334-1 (Version None)
Quarter: 2011Q1

REPORT INFORMATION
  Report Type: 
  Country: None (occurrence: None)
  Receive Date: 20110303
  Receipt Date: 20110205
  Transmission Date: 20110831
  Serious: No
  Sender: FDA-Public Use
  Company Number: US-B.I. PHARMACEUTICALS,INC./RIDGEFIELD-2011-BP-03814BP

PATIENT
  Age: 71 Year
  Sex: Male

DRUGS (3)
  1. PRADAXA [Suspect]
     Indication: ATRIAL FIBRILLATION
     Dosage: 300 MG
     Route: 048
     Dates: start: 20110126
  2. BYSTOLIC [Concomitant]
     Indication: HEART RATE ABNORMAL
     Dosage: 5 MG
     Route: 048
     Dates: start: 20110125
  3. FUROSEMIDE [Concomitant]
     Indication: OEDEMA PERIPHERAL
     Dosage: 20 MG
     Route: 048
     Dates: start: 20110125

REACTIONS (3)
  - CHEST DISCOMFORT [None]
  - SOMNOLENCE [None]
  - CARDIAC DISORDER [None]
